FAERS Safety Report 24584523 (Version 1)
Quarter: 2024Q4

REPORT INFORMATION
  Report Type: Spontaneous
  Country: BE (occurrence: BE)
  Receive Date: 20241106
  Receipt Date: 20241106
  Transmission Date: 20250114
  Serious: Yes (Hospitalization, Other)
  Sender: SANDOZ
  Company Number: None

PATIENT
  Age: 13 Year
  Sex: Male
  Weight: 61 kg

DRUGS (26)
  1. COTRIMOXAZOLE [Suspect]
     Active Substance: SULFAMETHOXAZOLE\TRIMETHOPRIM
     Indication: Product used for unknown indication
     Dosage: 400 MG, BID
     Route: 048
     Dates: start: 20080603
  2. CYCLOPHOSPHAMIDE [Suspect]
     Active Substance: CYCLOPHOSPHAMIDE
     Indication: Acute lymphocytic leukaemia
     Dosage: 100 MG/M2
     Route: 042
     Dates: start: 20080714, end: 20080714
  3. CYCLOPHOSPHAMIDE [Suspect]
     Active Substance: CYCLOPHOSPHAMIDE
     Dosage: 1000 MG/M2, UNKNOWN
     Route: 042
     Dates: start: 20080714, end: 20080714
  4. CYCLOPHOSPHAMIDE [Suspect]
     Active Substance: CYCLOPHOSPHAMIDE
     Dosage: 1000 MG/M2, UNKNOWN
     Route: 065
     Dates: start: 20100714
  5. CYTARABINE [Suspect]
     Active Substance: CYTARABINE
     Dosage: 75 MG/M2, QD
     Route: 042
     Dates: start: 20090716, end: 20090719
  6. CYTARABINE [Suspect]
     Active Substance: CYTARABINE
     Dosage: 75 MG/M2
     Route: 042
     Dates: start: 20080716, end: 20080719
  7. CYTARABINE [Suspect]
     Active Substance: CYTARABINE
     Dosage: 75 MG/M2
     Route: 042
     Dates: start: 20090723, end: 20090726
  8. CYTARABINE [Suspect]
     Active Substance: CYTARABINE
     Indication: Acute lymphocytic leukaemia
     Dosage: 30 MG, UNKNOWN
     Route: 037
     Dates: start: 20080716, end: 20080716
  9. CYTARABINE [Suspect]
     Active Substance: CYTARABINE
     Dosage: 75 MG/M2
     Route: 042
     Dates: start: 20080723, end: 20080726
  10. METHOTREXATE [Suspect]
     Active Substance: METHOTREXATE
     Indication: Acute lymphocytic leukaemia
     Dosage: 12 MG, UNKNOWN
     Route: 037
     Dates: start: 20080716, end: 20080716
  11. METHYLPREDNISOLONE [Suspect]
     Active Substance: METHYLPREDNISOLONE
     Indication: Acute lymphocytic leukaemia
     Dosage: 3 MG, UNKNOWN
     Route: 037
     Dates: start: 20080716, end: 20080716
  12. OMEPRAZOLE [Suspect]
     Active Substance: OMEPRAZOLE
     Indication: Gastrointestinal inflammation
     Dosage: 20 MG, QD
     Route: 048
     Dates: start: 20080307, end: 20080727
  13. OMEPRAZOLE [Suspect]
     Active Substance: OMEPRAZOLE
     Dosage: 20 MG, QD
     Route: 048
     Dates: start: 20080620
  14. OMEPRAZOLE [Suspect]
     Active Substance: OMEPRAZOLE
     Dosage: 20 MG, QD
     Route: 048
     Dates: start: 20100620
  15. ONDANSETRON HYDROCHLORIDE [Suspect]
     Active Substance: ONDANSETRON HYDROCHLORIDE
     Dosage: 10 MG/M2, QD, MAXIMUM 8MG 2 ONCE A DAY
     Route: 065
     Dates: start: 20080714, end: 20080729
  16. ONDANSETRON HYDROCHLORIDE [Suspect]
     Active Substance: ONDANSETRON HYDROCHLORIDE
     Indication: Product used for unknown indication
     Dosage: 5 MG/M2, QD
     Route: 065
     Dates: start: 20080714, end: 20080729
  17. OMEPRAZOLE [Suspect]
     Active Substance: OMEPRAZOLE
     Indication: Product used for unknown indication
     Dosage: 20 MG, QD, ONE ONCE A DAY
     Route: 048
     Dates: start: 20080307, end: 20080727
  18. ADRIAMYCIN [Concomitant]
     Active Substance: DOXORUBICIN HYDROCHLORIDE
     Indication: Acute lymphocytic leukaemia
     Dosage: 30 MG/M2, UNKNOWN
     Route: 048
  19. DEXAMETHASONE [Concomitant]
     Active Substance: DEXAMETHASONE
     Indication: Product used for unknown indication
     Dosage: 6 MG/M2, QD
     Route: 048
     Dates: start: 20080602
  20. DEXAMETHASONE [Concomitant]
     Active Substance: DEXAMETHASONE
     Dosage: UNK
     Route: 065
     Dates: start: 20100602
  21. ERWINASE [Concomitant]
     Active Substance: ASPARAGINASE ERWINIA CHRYSANTHEMI
     Indication: Product used for unknown indication
     Dosage: UNK
     Route: 065
     Dates: end: 20100620
  22. ASPARAGINASE [Concomitant]
     Active Substance: ASPARAGINASE
     Indication: Acute lymphocytic leukaemia
     Dosage: 20.000 U/M2
     Route: 048
     Dates: end: 20080620
  23. MESNA [Concomitant]
     Active Substance: MESNA
     Indication: Product used for unknown indication
     Dosage: 1000 MG/M2, UNKNOWN
     Route: 042
     Dates: start: 20080714, end: 20080714
  24. THIOGUANINE [Concomitant]
     Active Substance: THIOGUANINE
     Indication: Acute lymphocytic leukaemia
     Dosage: 60 MG/M2, QD
     Route: 048
     Dates: start: 20080714, end: 20080728
  25. VINCRISTINE [Concomitant]
     Active Substance: VINCRISTINE
     Indication: Acute lymphocytic leukaemia
     Dosage: 1.5 MG/M2, UNKNOWN
     Route: 048
     Dates: end: 20080701
  26. VINCRISTINE [Concomitant]
     Active Substance: VINCRISTINE
     Dosage: UNK
     Route: 065
     Dates: start: 20100701

REACTIONS (5)
  - Facial paralysis [Recovered/Resolved]
  - Stomatitis [Unknown]
  - Hemiparesis [Recovered/Resolved]
  - Dysarthria [Recovered/Resolved]
  - Facial paresis [Recovered/Resolved]

NARRATIVE: CASE EVENT DATE: 20080727
